FAERS Safety Report 11799824 (Version 2)
Quarter: 2020Q3

REPORT INFORMATION
  Report Type: Report from Study
  Country: PL (occurrence: PL)
  Receive Date: 20151203
  Receipt Date: 20160405
  Transmission Date: 20201104
  Serious: Yes (Hospitalization)
  Sender: FDA-Public Use
  Company Number: PL-JNJFOC-20151124100

PATIENT
  Age: 66 Year
  Sex: Male
  Weight: 63 kg

DRUGS (4)
  1. DEXAMETHASONE. [Suspect]
     Active Substance: DEXAMETHASONE
     Indication: PLASMA CELL MYELOMA
     Dosage: DAY 1, 2,8, 9, 15, 16, 22, 23, OF THE CYCLE.????MEDICINE KIT # 01057
     Route: 048
     Dates: start: 20150130
  2. DARATUMUMAB [Suspect]
     Active Substance: DARATUMUMAB
     Route: 042
  3. DARATUMUMAB [Suspect]
     Active Substance: DARATUMUMAB
     Indication: PLASMA CELL MYELOMA
     Dosage: DAY ONE OF THE CYCLE
     Route: 042
     Dates: start: 20150130
  4. LENALIDOMIDE [Suspect]
     Active Substance: LENALIDOMIDE
     Indication: PLASMA CELL MYELOMA
     Dosage: FREQUENCY = OTHER??MEDICINE KIT # 80099
     Route: 048
     Dates: start: 20150130

REACTIONS (1)
  - Oral fungal infection [Recovered/Resolved]

NARRATIVE: CASE EVENT DATE: 20151120
